FAERS Safety Report 7476734-1 (Version None)
Quarter: 2011Q2

REPORT INFORMATION
  Report Type: 
  Country: None (occurrence: None)
  Receive Date: 20110512
  Receipt Date: 20110510
  Transmission Date: 20111010
  Serious: Yes (Hospitalization)
  Sender: FDA-Public Use
  Company Number: US-PFIZER INC-2011076881

PATIENT
  Sex: Female
  Weight: 86.168 kg

DRUGS (11)
  1. PROTONIX [Interacting]
     Indication: GASTROOESOPHAGEAL REFLUX DISEASE
  2. PROTONIX [Suspect]
     Indication: DYSPEPSIA
     Dosage: 40 MG, 1X/DAY
     Dates: end: 20110301
  3. NORVASC [Concomitant]
     Indication: HYPERTENSION
     Dosage: 5 MG, 1X/DAY
     Route: 048
  4. SYNTHROID [Concomitant]
     Indication: THYROID DISORDER
     Dosage: 50 UG, 1X/DAY
     Route: 048
  5. DIOVAN [Concomitant]
     Indication: HYPERTENSION
     Dosage: 320 MG, 1X/DAY
     Route: 048
  6. METOPROLOL [Concomitant]
     Indication: HEART RATE INCREASED
     Dosage: 50 MG, 2X/DAY
  7. GEMFIBROZIL [Concomitant]
     Dosage: 600 MG, 1X/DAY
  8. PROTONIX [Interacting]
     Indication: HIATUS HERNIA
  9. ACETYLSALICYLIC ACID [Concomitant]
     Dosage: 81 MG, 1X/DAY
  10. VITAMIN D [Concomitant]
     Dosage: 50000 IU, ONCE EVERY TWO WEEKS
  11. PLAVIX [Interacting]
     Indication: STENT PLACEMENT
     Dosage: 75 MG, 1X/DAY
     Dates: start: 20000101

REACTIONS (4)
  - CONSTIPATION [None]
  - SKIN INJURY [None]
  - DRUG INTERACTION [None]
  - SKELETAL INJURY [None]
